FAERS Safety Report 11064227 (Version 3)
Quarter: 2015Q2

REPORT INFORMATION
  Report Type: Spontaneous
  Country: US (occurrence: US)
  Receive Date: 20150424
  Receipt Date: 20150514
  Transmission Date: 20150821
  Serious: Yes (Death, Hospitalization)
  Sender: FDA-Public Use
  Company Number: US-JNJFOC-20150420513

PATIENT
  Sex: Male

DRUGS (1)
  1. IMBRUVICA [Suspect]
     Active Substance: IBRUTINIB
     Indication: CHRONIC LYMPHOCYTIC LEUKAEMIA TRANSFORMATION
     Route: 048
     Dates: start: 201410, end: 201502

REACTIONS (4)
  - Dyspnoea [Unknown]
  - Conjunctival haemorrhage [Recovering/Resolving]
  - Electrolyte imbalance [Unknown]
  - Haemorrhagic stroke [Fatal]
